FAERS Safety Report 11856154 (Version 1)
Quarter: 2015Q4

REPORT INFORMATION
  Report Type: Spontaneous
  Country: PT (occurrence: PT)
  Receive Date: 20151221
  Receipt Date: 20151221
  Transmission Date: 20160305
  Serious: Yes (Hospitalization)
  Sender: FDA-Public Use
  Company Number: PT-KOWA-15JP001897

PATIENT
  Age: 72 Year
  Sex: Female

DRUGS (3)
  1. LOSARTAN + HIDROCLOROTIAZIDA       /01625701/ [Concomitant]
     Indication: HYPERTENSION
     Dosage: UNK, UNK
     Route: 065
  2. PROPAFENONE. [Concomitant]
     Active Substance: PROPAFENONE
     Indication: ATRIAL FIBRILLATION
     Dosage: 300 MG, UNK
     Route: 065
  3. PITAVASTATIN [Suspect]
     Active Substance: PITAVASTATIN
     Indication: DYSLIPIDAEMIA
     Dosage: 4 MG, UNK
     Route: 048

REACTIONS (2)
  - Cardiogenic shock [Recovered/Resolved]
  - Stress cardiomyopathy [Recovered/Resolved]
